FAERS Safety Report 15540047 (Version 4)
Quarter: 2019Q3

REPORT INFORMATION
  Report Type: Report from Study
  Country: US (occurrence: US)
  Receive Date: 20181023
  Receipt Date: 20190925
  Transmission Date: 20191004
  Serious: No
  Sender: FDA-Public Use
  Company Number: PHHY2018US129679

PATIENT
  Age: 64 Year
  Sex: Male

DRUGS (3)
  1. COSENTYX [Suspect]
     Active Substance: SECUKINUMAB
     Indication: PSORIATIC ARTHROPATHY
     Dosage: UNK
     Route: 065
     Dates: start: 20170301
  2. COSENTYX [Suspect]
     Active Substance: SECUKINUMAB
     Dosage: 300 MG, QMO
     Route: 058
  3. COSENTYX [Suspect]
     Active Substance: SECUKINUMAB
     Dosage: 300 MG, UNK
     Route: 065
     Dates: start: 20180731

REACTIONS (17)
  - Contusion [Unknown]
  - Device malfunction [Unknown]
  - Skin haemorrhage [Unknown]
  - Incorrect dose administered [Unknown]
  - Insomnia [Unknown]
  - Limb deformity [Unknown]
  - Mobility decreased [Unknown]
  - Movement disorder [Unknown]
  - Discomfort [Unknown]
  - Drug ineffective [Unknown]
  - Nervousness [Unknown]
  - Dry mouth [Unknown]
  - General physical health deterioration [Unknown]
  - Arthralgia [Unknown]
  - Pain in extremity [Unknown]
  - Malaise [Unknown]
  - Pain [Unknown]

NARRATIVE: CASE EVENT DATE: 20180731
